FAERS Safety Report 6662378-8 (Version None)
Quarter: 2010Q1

REPORT INFORMATION
  Report Type: 
  Country: None (occurrence: None)
  Receive Date: 20100331
  Receipt Date: 20100323
  Transmission Date: 20100710
  Serious: Yes (Hospitalization)
  Sender: FDA-Public Use
  Company Number: FR-ABBOTT-10P-056-0625413-00

PATIENT
  Sex: Male
  Weight: 67 kg

DRUGS (4)
  1. HUMIRA [Suspect]
     Indication: CROHN'S DISEASE
     Dosage: 80MG LOADING DOSE
     Route: 058
     Dates: start: 20100118
  2. HUMIRA [Suspect]
     Indication: PROPHYLAXIS
  3. HUMIRA [Suspect]
  4. HUMIRA [Suspect]
     Indication: SURGERY

REACTIONS (8)
  - ARTHRALGIA [None]
  - BIOPSY SKIN ABNORMAL [None]
  - DERMATITIS BULLOUS [None]
  - HENOCH-SCHONLEIN PURPURA [None]
  - LEUKOCYTOCLASTIC VASCULITIS [None]
  - PETECHIAE [None]
  - PURPURA [None]
  - SKIN LESION [None]
